FAERS Safety Report 23020056 (Version 1)
Quarter: 2023Q4

REPORT INFORMATION
  Report Type: Spontaneous
  Country: SE (occurrence: SE)
  Receive Date: 20231003
  Receipt Date: 20231003
  Transmission Date: 20240109
  Serious: Yes (Disabling)
  Sender: FDA-Public Use
  Company Number: None

PATIENT
  Age: 29 Year
  Sex: Male
  Weight: 92 kg

DRUGS (1)
  1. OXAZEPAM [Suspect]
     Active Substance: OXAZEPAM
     Indication: Product used for unknown indication
     Dosage: DOSAGE 1-2

REACTIONS (3)
  - Blood pressure abnormal [Unknown]
  - Heart rate abnormal [Recovered/Resolved with Sequelae]
  - Blood glucose abnormal [Unknown]

NARRATIVE: CASE EVENT DATE: 20220815
